FAERS Safety Report 4346836-7 (Version None)
Quarter: 2004Q2

REPORT INFORMATION
  Report Type: 
  Country: None (occurrence: None)
  Receive Date: 20040426
  Receipt Date: 20040414
  Transmission Date: 20050107
  Serious: Yes (Hospitalization, Disabling)
  Sender: FDA-Public Use
  Company Number: FR-BRISTOL-MYERS SQUIBB COMPANY-12567590

PATIENT
  Age: 57 Year
  Sex: Male
  Weight: 41 kg

DRUGS (1)
  1. CETUXIMAB [Suspect]
     Indication: NEOPLASM MALIGNANT
     Route: 042
     Dates: start: 20020226, end: 20020408

REACTIONS (5)
  - ASTHENIA [None]
  - CACHEXIA [None]
  - DYSPHAGIA [None]
  - MUCOSAL INFLAMMATION [None]
  - WEIGHT DECREASED [None]
